FAERS Safety Report 5339713-6 (Version None)
Quarter: 2007Q2

REPORT INFORMATION
  Report Type: 
  Country: None (occurrence: None)
  Receive Date: 20070404
  Receipt Date: 20060901
  Transmission Date: 20071010
  Serious: Yes (Other)
  Sender: FDA-Public Use
  Company Number: 2006105951

PATIENT
  Sex: Female

DRUGS (3)
  1. GEODON [Suspect]
     Indication: DRUG USE FOR UNKNOWN INDICATION
  2. TRILEPTAL [Concomitant]
  3. PROZAC [Concomitant]

REACTIONS (2)
  - AKATHISIA [None]
  - HYPERREFLEXIA [None]
